FAERS Safety Report 9351284 (Version 2)
Quarter: 2013Q3

REPORT INFORMATION
  Report Type: Spontaneous
  Country: US (occurrence: US)
  Receive Date: 20130617
  Receipt Date: 20130814
  Transmission Date: 20140515
  Serious: Yes (Other)
  Sender: FDA-Public Use
  Company Number: US-PFIZER INC-2013179888

PATIENT
  Age: 78 Year
  Sex: Male
  Weight: 56.69 kg

DRUGS (3)
  1. TIKOSYN [Suspect]
     Indication: HEART RATE IRREGULAR
     Dosage: 250 UG, 2X/DAY
     Route: 048
     Dates: start: 20130603, end: 20130610
  2. WARFARIN [Concomitant]
     Indication: COAGULOPATHY
     Dosage: UNK
  3. DILTIAZEM [Concomitant]
     Dosage: 120 MG, EVERY OTHER DAY

REACTIONS (3)
  - Dyspnoea [Unknown]
  - Malaise [Unknown]
  - Cardiac disorder [Unknown]
